FAERS Safety Report 21500087 (Version 1)
Quarter: 2022Q4

REPORT INFORMATION
  Report Type: Spontaneous
  Country: US (occurrence: US)
  Receive Date: 20221024
  Receipt Date: 20221024
  Transmission Date: 20230113
  Serious: No
  Sender: FDA-Public Use
  Company Number: US-HORIZON THERAPEUTICS-HZN-2022-003574

PATIENT

DRUGS (12)
  1. KRYSTEXXA [Suspect]
     Active Substance: PEGLOTICASE
     Indication: Product used for unknown indication
     Dosage: FIRST INFUSION
     Route: 042
     Dates: start: 20211206
  2. KRYSTEXXA [Suspect]
     Active Substance: PEGLOTICASE
     Dosage: SECOND INFUSION
     Route: 042
  3. KRYSTEXXA [Suspect]
     Active Substance: PEGLOTICASE
     Dosage: THIRD INFUSION
     Route: 042
  4. KRYSTEXXA [Suspect]
     Active Substance: PEGLOTICASE
     Dosage: FOURTH INFUSION
     Route: 042
  5. KRYSTEXXA [Suspect]
     Active Substance: PEGLOTICASE
     Dosage: FIFTH INFUSION
     Route: 042
  6. KRYSTEXXA [Suspect]
     Active Substance: PEGLOTICASE
     Dosage: SIXTH INFUSION
     Route: 042
  7. KRYSTEXXA [Suspect]
     Active Substance: PEGLOTICASE
     Dosage: SEVENTH INFUSION
     Route: 042
  8. KRYSTEXXA [Suspect]
     Active Substance: PEGLOTICASE
     Dosage: EIGHTH INFUSION
     Route: 042
  9. KRYSTEXXA [Suspect]
     Active Substance: PEGLOTICASE
     Dosage: NINTH INFUSION
     Route: 042
  10. KRYSTEXXA [Suspect]
     Active Substance: PEGLOTICASE
     Dosage: TENTH INFUSION
     Route: 042
  11. KRYSTEXXA [Suspect]
     Active Substance: PEGLOTICASE
     Dosage: ELEVEN INFUSION
     Route: 042
  12. KRYSTEXXA [Suspect]
     Active Substance: PEGLOTICASE
     Dosage: TWELFTH INFUSION
     Route: 042

REACTIONS (2)
  - Infusion related reaction [Unknown]
  - Rash [Recovering/Resolving]
